FAERS Safety Report 11173646 (Version 1)
Quarter: 2015Q2

REPORT INFORMATION
  Report Type: Other
  Country: US (occurrence: US)
  Receive Date: 20150609
  Receipt Date: 20150609
  Transmission Date: 20150821
  Serious: No
  Sender: FDA-Public Use
  Company Number: US-LUPIN PHARMACEUTICALS INC.-2015-01453

PATIENT
  Sex: Male

DRUGS (1)
  1. SERTRALINE TABLETS USP 100 MG [Suspect]
     Active Substance: SERTRALINE HYDROCHLORIDE
     Indication: PRODUCT USED FOR UNKNOWN INDICATION
     Route: 048
     Dates: start: 20150506

REACTIONS (2)
  - Drug ineffective [Unknown]
  - Glossodynia [Unknown]

NARRATIVE: CASE EVENT DATE: 201505
